FAERS Safety Report 7273566-4 (Version None)
Quarter: 2011Q1

REPORT INFORMATION
  Report Type: 
  Country: None (occurrence: None)
  Receive Date: 20110203
  Receipt Date: 20101006
  Transmission Date: 20110831
  Serious: No
  Sender: FDA-Public Use
  Company Number: US-ABBOTT-10P-163-0677201-00

PATIENT
  Sex: Female
  Weight: 57.658 kg

DRUGS (2)
  1. VALIUM [Concomitant]
     Indication: PRODUCT USED FOR UNKNOWN INDICATION
     Dosage: 45 MG DAILY DOSE
  2. SYNTHROID [Suspect]
     Indication: AUTOIMMUNE THYROIDITIS
     Dosage: PATIENT STATES SHE TAKES 2 1/2 DAY
     Dates: start: 20050101

REACTIONS (4)
  - WEIGHT INCREASED [None]
  - STREPTOCOCCAL INFECTION [None]
  - DRUG INEFFECTIVE [None]
  - FEELING COLD [None]
